FAERS Safety Report 15090844 (Version 1)
Quarter: 2018Q2

REPORT INFORMATION
  Report Type: Spontaneous
  Country: US (occurrence: US)
  Receive Date: 20180629
  Receipt Date: 20180629
  Transmission Date: 20180711
  Serious: No
  Sender: FDA-Public Use
  Company Number: US-AMGEN-USASP2011019143

PATIENT
  Age: 70 Year
  Sex: Female

DRUGS (11)
  1. MULTIVITAMIN                       /00097801/ [Concomitant]
     Active Substance: VITAMINS
  2. VITAMIN D                          /00107901/ [Concomitant]
     Active Substance: ERGOCALCIFEROL
  3. PROLIA [Suspect]
     Active Substance: DENOSUMAB
     Indication: OSTEOPOROSIS POSTMENOPAUSAL
     Dosage: 60 MG, Q6MO
     Dates: start: 20101213
  4. VITAMIN C [Concomitant]
     Active Substance: ASCORBIC ACID
  5. AVAPRO [Concomitant]
     Active Substance: IRBESARTAN
  6. BIOTIN [Concomitant]
     Active Substance: BIOTIN
  7. GLUCOSAMINE + CHONDROITIN WITH MSM [Concomitant]
  8. ZINC. [Concomitant]
     Active Substance: ZINC
  9. PRESERVISION LUTEIN EYE VITA.+MIN.SUP.SOFTG. [Concomitant]
  10. CALCIUM WITH VITAMIN D             /00944201/ [Concomitant]
     Active Substance: CALCIUM CARBONATE\CHOLECALCIFEROL
  11. CRANBERRY                          /01512301/ [Concomitant]
     Active Substance: CRANBERRY

REACTIONS (1)
  - Haematuria [Not Recovered/Not Resolved]

NARRATIVE: CASE EVENT DATE: 20110409
